FAERS Safety Report 9698582 (Version 1)
Quarter: 2013Q4

REPORT INFORMATION
  Report Type: Spontaneous
  Country: GB (occurrence: GB)
  Receive Date: 20131120
  Receipt Date: 20131120
  Transmission Date: 20140711
  Serious: Yes (Other)
  Sender: FDA-Public Use
  Company Number: GB-GLAXOSMITHKLINE-B0942249A

PATIENT
  Age: 77 Year
  Sex: Male

DRUGS (2)
  1. SERETIDE (50MCG/500MCG) [Suspect]
     Indication: PRODUCT USED FOR UNKNOWN INDICATION
     Dosage: 1PUFF TWICE PER DAY
     Route: 055
     Dates: start: 20131001
  2. SALBUTAMOL [Concomitant]

REACTIONS (2)
  - Candida infection [Unknown]
  - Product taste abnormal [Unknown]
